FAERS Safety Report 19417436 (Version 1)
Quarter: 2021Q2

REPORT INFORMATION
  Report Type: Spontaneous
  Country: US (occurrence: US)
  Receive Date: 20210615
  Receipt Date: 20210615
  Transmission Date: 20210717
  Serious: Yes (Disabling)
  Sender: FDA-Public Use
  Company Number: None

PATIENT
  Age: 72 Year
  Sex: Female
  Weight: 45.45 kg

DRUGS (9)
  1. AMLODIPINE BESYLATE. [Suspect]
     Active Substance: AMLODIPINE BESYLATE
     Indication: HYPERTENSION
     Route: 048
     Dates: start: 20200120, end: 20210330
  2. LISINOPRIL. [Suspect]
     Active Substance: LISINOPRIL
     Indication: HYPERTENSION
     Dosage: ?          QUANTITY:1 TABLET(S);?
     Route: 048
     Dates: start: 20210331, end: 20210426
  3. TELMISARTAN. [Concomitant]
     Active Substance: TELMISARTAN
  4. LORAZEPAM. [Concomitant]
     Active Substance: LORAZEPAM
  5. MELATONIN [Concomitant]
     Active Substance: MELATONIN
  6. COD LIVER OIL [Concomitant]
     Active Substance: COD LIVER OIL
  7. TURMERIC [Concomitant]
     Active Substance: HERBALS\TURMERIC
  8. MULTIPLE VITAMIN [Concomitant]
     Active Substance: VITAMINS
  9. MAGNESIUM [Concomitant]
     Active Substance: MAGNESIUM

REACTIONS (13)
  - Eructation [None]
  - Change of bowel habit [None]
  - Gastric disorder [None]
  - Dyspepsia [None]
  - Flatulence [None]
  - Upper-airway cough syndrome [None]
  - Weight decreased [None]
  - Sinusitis [None]
  - Abdominal pain upper [None]
  - Tympanic membrane perforation [None]
  - Dyspnoea [None]
  - Nausea [None]
  - Early satiety [None]
